FAERS Safety Report 6428750-6 (Version None)
Quarter: 2009Q4

REPORT INFORMATION
  Report Type: 
  Country: None (occurrence: None)
  Receive Date: 20091105
  Receipt Date: 20091027
  Transmission Date: 20100525
  Serious: Yes (Hospitalization)
  Sender: FDA-Public Use
  Company Number: US-AVENTIS-200919553US

PATIENT
  Age: 65 Year
  Sex: Female

DRUGS (4)
  1. LOVENOX [Suspect]
     Dates: start: 20090701, end: 20090708
  2. LOVENOX [Suspect]
     Dates: start: 20090716, end: 20090719
  3. COUMADIN [Suspect]
     Dosage: DOSE: UNK
     Dates: start: 20090701, end: 20090708
  4. ALL OTHER THERAPEUTIC PRODUCTS [Concomitant]
     Dosage: DOSE: UNK
     Dates: start: 20090101, end: 20090101

REACTIONS (2)
  - INFECTION [None]
  - INTERNATIONAL NORMALISED RATIO INCREASED [None]
